FAERS Safety Report 8788771 (Version 2)
Quarter: 2012Q4

REPORT INFORMATION
  Report Type: 
  Country: FR (occurrence: FR)
  Receive Date: 20120917
  Receipt Date: 20121029
  Transmission Date: 20130627
  Serious: No
  Sender: FDA-Public Use
  Company Number: FR-JNJFOC-20120903700

PATIENT
  Sex: Male
  Weight: 75 kg

DRUGS (1)
  1. DUROGESIC [Suspect]
     Indication: PAIN
     Dosage: apply at night and remove on morning after get washed
     Route: 062

REACTIONS (4)
  - Off label use [Unknown]
  - Drug prescribing error [Unknown]
  - Intercepted drug prescribing error [Unknown]
  - Off label use [Unknown]
